FAERS Safety Report 5444138-9 (Version None)
Quarter: 2007Q3

REPORT INFORMATION
  Report Type: 
  Country: None (occurrence: None)
  Receive Date: 20070904
  Receipt Date: 20070820
  Transmission Date: 20080115
  Serious: Yes (Hospitalization)
  Sender: FDA-Public Use
  Company Number: US-JNJFOC-20070804288

PATIENT
  Sex: Female

DRUGS (1)
  1. DACOGEN [Suspect]
     Indication: MYELODYSPLASTIC SYNDROME
     Dosage: 1 IN 1 DAY, INTRAVENOUS
     Route: 042
     Dates: start: 20070711, end: 20070715

REACTIONS (6)
  - BLOOD COUNT ABNORMAL [None]
  - DIVERTICULITIS [None]
  - ENTEROBACTER SEPSIS [None]
  - INFLUENZA LIKE ILLNESS [None]
  - PANCYTOPENIA [None]
  - STOMACH DISCOMFORT [None]
